FAERS Safety Report 8083865-4 (Version None)
Quarter: 2012Q1

REPORT INFORMATION
  Report Type: 
  Country: None (occurrence: None)
  Receive Date: 20120128
  Receipt Date: 20110207
  Transmission Date: 20120608
  Serious: No
  Sender: FDA-Public Use
  Company Number: US-ABBOTT-11P-163-0703161-00

PATIENT
  Sex: Female

DRUGS (3)
  1. MORPHINE [Concomitant]
     Indication: PAIN MANAGEMENT
  2. HYDROCODONE BITARTRATE AND ACETAMINOPHEN [Suspect]
     Indication: PAIN MANAGEMENT
     Dosage: 10/650 MG; 3 IN 1 DAYS
  3. HUMIRA [Suspect]
     Indication: ANKYLOSING SPONDYLITIS
     Dates: start: 20050101, end: 20101001

REACTIONS (2)
  - ARTHRALGIA [None]
  - BONE PAIN [None]
